FAERS Safety Report 5738696-4 (Version None)
Quarter: 2008Q2

REPORT INFORMATION
  Report Type: 
  Country: None (occurrence: None)
  Receive Date: 20080512
  Receipt Date: 20080512
  Transmission Date: 20081010
  Serious: Yes (Other)
  Sender: FDA-Public Use
  Company Number: None

PATIENT
  Age: 74 Year
  Sex: Female
  Weight: 63.5036 kg

DRUGS (3)
  1. CIPROFLOXACIN [Suspect]
     Indication: URINARY TRACT INFECTION
     Dosage: ONE TAB TWICE DAILY BY MOUTH
     Route: 048
     Dates: start: 20080401, end: 20080404
  2. BACTRIM DS [Suspect]
     Indication: URINARY TRACT INFECTION
     Dosage: ONE TAB TWICE DAILY BY MOUTH
     Route: 048
     Dates: start: 20050609
  3. BACTRIM DS [Suspect]
     Indication: URINARY TRACT INFECTION
     Dosage: ONE TAB TWICE DAILY BY MOUTH
     Route: 048
     Dates: start: 20061219

REACTIONS (1)
  - UNEVALUABLE EVENT [None]
